FAERS Safety Report 12538551 (Version 1)
Quarter: 2016Q3

REPORT INFORMATION
  Report Type: Spontaneous
  Country: US (occurrence: US)
  Receive Date: 20160708
  Receipt Date: 20160708
  Transmission Date: 20161109
  Serious: Yes (Other)
  Sender: FDA-Public Use
  Company Number: US-BEH-2016070862

PATIENT
  Age: 61 Year
  Sex: Male

DRUGS (1)
  1. STIMATE [Suspect]
     Active Substance: DESMOPRESSIN ACETATE
     Indication: VON WILLEBRAND^S DISEASE
     Dosage: UNK UNK, PRN
     Route: 045
     Dates: start: 20160405

REACTIONS (2)
  - Glaucoma surgery [Unknown]
  - Glaucoma [Unknown]

NARRATIVE: CASE EVENT DATE: 20160620
